FAERS Safety Report 24169876 (Version 2)
Quarter: 2024Q3

REPORT INFORMATION
  Report Type: Report from Study
  Country: JP (occurrence: JP)
  Receive Date: 20240803
  Receipt Date: 20240914
  Transmission Date: 20241016
  Serious: No
  Sender: AMGEN
  Company Number: JP-AMGEN-HZN-2022-003069

PATIENT
  Age: 38 Year
  Sex: Male
  Weight: 80.2 kg

DRUGS (17)
  1. INEBILIZUMAB [Suspect]
     Active Substance: INEBILIZUMAB
     Indication: Neuromyelitis optica spectrum disorder
     Dosage: 300 MILLIGRAM, QD
     Route: 042
     Dates: start: 20220128, end: 20220128
  2. INEBILIZUMAB [Suspect]
     Active Substance: INEBILIZUMAB
     Dosage: 300 MILLIGRAM, QD
     Route: 042
     Dates: start: 20220218, end: 20220218
  3. INEBILIZUMAB [Suspect]
     Active Substance: INEBILIZUMAB
     Dosage: 300 MILLIGRAM, QD
     Route: 042
     Dates: start: 20221014
  4. ELOBIXIBAT [Concomitant]
     Active Substance: ELOBIXIBAT
     Indication: Product used for unknown indication
     Dosage: UNK
     Route: 065
  5. PREGABALIN [Concomitant]
     Active Substance: PREGABALIN
     Indication: Neuromyelitis optica spectrum disorder
     Dosage: UNK
     Route: 065
  6. VONOPRAZAN FUMARATE [Concomitant]
     Active Substance: VONOPRAZAN FUMARATE
     Indication: Neuromyelitis optica spectrum disorder
     Dosage: UNK
     Route: 065
  7. SULFAMETHOXAZOLE\TRIMETHOPRIM [Concomitant]
     Active Substance: SULFAMETHOXAZOLE\TRIMETHOPRIM
     Indication: Neuromyelitis optica spectrum disorder
     Dosage: UNK
     Route: 065
  8. PREDONINE [Concomitant]
     Active Substance: PREDNISOLONE
     Indication: Neuromyelitis optica spectrum disorder
     Dosage: UNK
     Route: 065
     Dates: start: 20220121, end: 20220324
  9. AMITIZA [Concomitant]
     Active Substance: LUBIPROSTONE
     Indication: Product used for unknown indication
     Dosage: UNK
     Route: 065
  10. MAGNESIUM OXIDE [Concomitant]
     Active Substance: MAGNESIUM OXIDE
     Indication: Cystic lung disease
     Dosage: UNK
     Route: 065
  11. DEXAN VG [Concomitant]
     Indication: Neuromyelitis optica spectrum disorder
     Dosage: UNK
     Route: 065
  12. NAFTOPIDIL [Concomitant]
     Active Substance: NAFTOPIDIL
     Indication: Neuromyelitis optica spectrum disorder
     Dosage: UNK
     Route: 065
  13. DISTIGMINE BROMIDE [Concomitant]
     Active Substance: DISTIGMINE BROMIDE
     Indication: Neuromyelitis optica spectrum disorder
     Dosage: UNK
     Route: 065
  14. ENSPRYNG [Concomitant]
     Active Substance: SATRALIZUMAB-MWGE
     Indication: Neuromyelitis optica spectrum disorder
     Dosage: UNK
     Route: 065
  15. ACETAMINOPHEN [Concomitant]
     Active Substance: ACETAMINOPHEN
     Indication: Product used for unknown indication
     Dosage: UNK
     Route: 065
  16. DIPHENHYDRAMINE [Concomitant]
     Active Substance: DIPHENHYDRAMINE
     Indication: Neuromyelitis optica spectrum disorder
     Dosage: UNK
     Route: 065
  17. Lecicarbon [Concomitant]
     Indication: Constipation
     Dosage: UNK

REACTIONS (2)
  - Rash [Recovering/Resolving]
  - Therapeutic product effect incomplete [Unknown]

NARRATIVE: CASE EVENT DATE: 20220312
